FAERS Safety Report 9112031 (Version 1)
Quarter: 2013Q1

REPORT INFORMATION
  Report Type: Spontaneous
  Country: US (occurrence: US)
  Receive Date: 20130219
  Receipt Date: 20130219
  Transmission Date: 20140127
  Serious: No
  Sender: FDA-Public Use
  Company Number: US-BRISTOL-MYERS SQUIBB COMPANY-16544397

PATIENT
  Age: 56 Year
  Sex: Female

DRUGS (1)
  1. ORENCIA [Suspect]
     Dosage: LAST INF-28FEB2012.
     Route: 042
     Dates: start: 201108

REACTIONS (3)
  - Nasopharyngitis [Recovering/Resolving]
  - Dyspnoea [Recovering/Resolving]
  - Paranasal sinus hypersecretion [Unknown]
